FAERS Safety Report 5663091-6 (Version None)
Quarter: 2008Q1

REPORT INFORMATION
  Report Type: 
  Country: None (occurrence: None)
  Receive Date: 20080313
  Receipt Date: 20080305
  Transmission Date: 20080703
  Serious: Yes (Congenital Anomaly)
  Sender: FDA-Public Use
  Company Number: A0696984A

PATIENT
  Age: 8 Year
  Sex: Female

DRUGS (2)
  1. VERAMYST [Suspect]
     Indication: DRUG USE FOR UNKNOWN INDICATION
     Route: 045
     Dates: start: 20071107, end: 20071130
  2. NUTROPIN [Concomitant]

REACTIONS (2)
  - NAUSEA [None]
  - VOMITING [None]
